FAERS Safety Report 13440582 (Version 1)
Quarter: 2017Q2

REPORT INFORMATION
  Report Type: Spontaneous
  Country: US (occurrence: US)
  Receive Date: 20170413
  Receipt Date: 20170413
  Transmission Date: 20170830
  Serious: Yes (Hospitalization, Other)
  Sender: FDA-Public Use
  Company Number: US-SHIRE-US201708283

PATIENT
  Age: 70 Year
  Sex: Female

DRUGS (1)
  1. LIALDA [Suspect]
     Active Substance: MESALAMINE
     Indication: COLITIS ULCERATIVE
     Dosage: 4.8 G, 1X/DAY:QD
     Route: 048
     Dates: end: 201701

REACTIONS (7)
  - Oesophageal obstruction [Unknown]
  - Dysphagia [Not Recovered/Not Resolved]
  - Atrial fibrillation [Unknown]
  - Oral administration complication [Not Recovered/Not Resolved]
  - Drug dose omission [Not Recovered/Not Resolved]
  - Diverticulum oesophageal [Unknown]
  - Product quality issue [Unknown]

NARRATIVE: CASE EVENT DATE: 201701
